FAERS Safety Report 5934612-0 (Version None)
Quarter: 2008Q4

REPORT INFORMATION
  Report Type: 
  Country: None (occurrence: None)
  Receive Date: 20081029
  Receipt Date: 20081017
  Transmission Date: 20090506
  Serious: Yes (Life-Threatening)
  Sender: FDA-Public Use
  Company Number: JP-ASTRAZENECA-2008SE04985

PATIENT
  Sex: Male
  Weight: 49 kg

DRUGS (5)
  1. TCV-116 [Suspect]
     Indication: HYPERTENSION
     Route: 048
     Dates: start: 20071204, end: 20080225
  2. TCV-116 [Suspect]
     Route: 048
     Dates: start: 20080226, end: 20081019
  3. AD-4833 [Suspect]
     Indication: TYPE 2 DIABETES MELLITUS
     Route: 048
     Dates: start: 20071204, end: 20080225
  4. AD-4833 [Suspect]
     Route: 048
     Dates: start: 20080226, end: 20081019
  5. KARY UNI [Concomitant]
     Indication: CATARACT
     Route: 047
     Dates: start: 20010514

REACTIONS (1)
  - PANCREATIC CARCINOMA [None]
